FAERS Safety Report 18789564 (Version 3)
Quarter: 2021Q1

REPORT INFORMATION
  Report Type: Spontaneous
  Country: US (occurrence: US)
  Receive Date: 20210125
  Receipt Date: 20210304
  Transmission Date: 20210419
  Serious: Yes (Other)
  Sender: FDA-Public Use
  Company Number: US-VALIDUS PHARMACEUTICALS LLC-US-2021VAL000047

PATIENT

DRUGS (8)
  1. TRIAMTERENE. [Suspect]
     Active Substance: TRIAMTERENE
     Dosage: UNK
     Route: 065
  2. HYDROCODONE [Concomitant]
     Active Substance: HYDROCODONE
     Indication: PRODUCT USED FOR UNKNOWN INDICATION
     Dosage: UNK
  3. LASIX [Suspect]
     Active Substance: FUROSEMIDE
     Indication: BLOOD PRESSURE MEASUREMENT
     Dosage: UNK
     Route: 065
  4. LASIX [Suspect]
     Active Substance: FUROSEMIDE
     Dosage: UNK
     Route: 065
     Dates: start: 20210108
  5. HUMIRA [Suspect]
     Active Substance: ADALIMUMAB
     Indication: CROHN^S DISEASE
     Dosage: UNK UNK, QW
     Route: 058
  6. HUMIRA [Suspect]
     Active Substance: ADALIMUMAB
     Dosage: (40MG/0.4ML)
     Route: 065
  7. TRIAMTERENE. [Suspect]
     Active Substance: TRIAMTERENE
     Indication: BLOOD PRESSURE MEASUREMENT
     Dosage: UNK
     Route: 065
  8. HUMIRA [Suspect]
     Active Substance: ADALIMUMAB
     Dosage: UNK UNK, QW, CITRATE FREE (1 IN 1 WK)
     Route: 058
     Dates: start: 202008

REACTIONS (14)
  - Meniscus injury [Unknown]
  - Osteopenia [Unknown]
  - Gastric disorder [Unknown]
  - Muscle spasms [Unknown]
  - Peripheral swelling [Unknown]
  - Procedural pain [Recovering/Resolving]
  - Therapeutic product effect delayed [Unknown]
  - Joint swelling [Unknown]
  - Fall [Unknown]
  - Osteoporosis [Unknown]
  - Arthralgia [Unknown]
  - Pain in extremity [Unknown]
  - Therapy interrupted [Unknown]
  - Urticaria [Unknown]

NARRATIVE: CASE EVENT DATE: 2020
